FAERS Safety Report 20850987 (Version 3)
Quarter: 2022Q2

REPORT INFORMATION
  Report Type: Spontaneous
  Country: US (occurrence: US)
  Receive Date: 20220519
  Receipt Date: 20220613
  Transmission Date: 20220721
  Serious: Yes (Other)
  Sender: FDA-Public Use
  Company Number: US-NOVEN PHARMACEUTICALS, INC.-2022-NOV-US000477

PATIENT
  Sex: Female

DRUGS (1)
  1. DAYTRANA [Suspect]
     Active Substance: METHYLPHENIDATE
     Indication: Attention deficit hyperactivity disorder
     Dosage: 10 MG/9 HOURS
     Route: 062

REACTIONS (5)
  - Product adhesion issue [Recovered/Resolved]
  - Device adhesion issue [Recovered/Resolved]
  - Recalled product administered [Recovered/Resolved]
  - Off label use [Not Recovered/Not Resolved]
  - No adverse event [Unknown]
